FAERS Safety Report 24012562 (Version 2)
Quarter: 2025Q4

REPORT INFORMATION
  Report Type: Spontaneous
  Country: US (occurrence: None)
  Receive Date: 20240626
  Receipt Date: 20251120
  Transmission Date: 20260117
  Serious: Yes (Other)
  Sender: AUROBINDO
  Company Number: US-MLMSERVICE-20240508-PI052533-00271-1

PATIENT
  Age: 20 Year
  Sex: Female

DRUGS (27)
  1. DEXAMETHASONE [Suspect]
     Active Substance: DEXAMETHASONE
     Indication: KMT2A gene mutation
     Dosage: 5 MILLIGRAM/SQ. METER, TWO TIMES A DAY
  2. DEXAMETHASONE [Suspect]
     Active Substance: DEXAMETHASONE
     Indication: B-cell type acute leukaemia
     Dosage: 40 MILLIGRAM, 1 TOTAL
  3. METHOTREXATE [Suspect]
     Active Substance: METHOTREXATE
     Indication: Prophylaxis
     Dosage: 15 MILLIGRAM (EVERY 2?4 WEEKS, THROUGHOUT INDUCTION AND CONSOLIDATION)
  4. PALBOCICLIB [Suspect]
     Active Substance: PALBOCICLIB
     Indication: KMT2A gene mutation
     Dosage: 2100 MILLIGRAM, CYCLICAL (100 MG PO DAYS 1?21 1 CYCLE (28-DAY CYCLE))
  5. PALBOCICLIB [Suspect]
     Active Substance: PALBOCICLIB
     Indication: B-cell type acute leukaemia
  6. PALBOCICLIB [Suspect]
     Active Substance: PALBOCICLIB
     Indication: Germ cell neoplasm
  7. PALBOCICLIB [Suspect]
     Active Substance: PALBOCICLIB
     Indication: Teratoma
  8. PREDNISONE [Suspect]
     Active Substance: PREDNISONE
     Indication: B-cell type acute leukaemia
     Dosage: 30 MILLIGRAM/SQ. METER, CYCLICAL (30 MG/M2 PO DAILY, 1 CYCLE (28-DAY CYCLE))
  9. PREDNISONE [Suspect]
     Active Substance: PREDNISONE
     Indication: Teratoma
  10. PREDNISONE [Suspect]
     Active Substance: PREDNISONE
     Indication: KMT2A gene mutation
  11. PREDNISONE [Suspect]
     Active Substance: PREDNISONE
     Indication: Germ cell neoplasm
  12. DAUNORUBICIN [Suspect]
     Active Substance: DAUNORUBICIN
     Indication: KMT2A gene mutation
     Dosage: 25 MILLIGRAM/SQ. METER, CYCLICAL (25 MG/M2 IV WEEKLY, 1 CYCLE (28-DAY CYCLE))
  13. DAUNORUBICIN [Suspect]
     Active Substance: DAUNORUBICIN
     Indication: B-cell type acute leukaemia
  14. DAUNORUBICIN [Suspect]
     Active Substance: DAUNORUBICIN
     Indication: Germ cell neoplasm
  15. DAUNORUBICIN [Suspect]
     Active Substance: DAUNORUBICIN
     Indication: Teratoma
  16. ASPARAGINASE [Suspect]
     Active Substance: ASPARAGINASE
     Indication: Teratoma
     Dosage: 2500 UNITS/M2 IV DAY 4, 1 CYCLE (28-DAY CYCLE)
  17. ASPARAGINASE [Suspect]
     Active Substance: ASPARAGINASE
     Indication: KMT2A gene mutation
  18. ASPARAGINASE [Suspect]
     Active Substance: ASPARAGINASE
     Indication: B-cell type acute leukaemia
  19. ASPARAGINASE [Suspect]
     Active Substance: ASPARAGINASE
     Indication: Germ cell neoplasm
  20. CYTARABINE [Suspect]
     Active Substance: CYTARABINE
     Indication: B-cell type acute leukaemia
     Dosage: 1 GRAM PER SQUARE METRE, 1 TOTAL
  21. CYTARABINE [Suspect]
     Active Substance: CYTARABINE
     Indication: KMT2A gene mutation
  22. HYDROXYUREA [Suspect]
     Active Substance: HYDROXYUREA
     Indication: B-cell type acute leukaemia
     Dosage: 25 MILLIGRAM/KILOGRAM, TWO TIMES A DAY
  23. HYDROXYUREA [Suspect]
     Active Substance: HYDROXYUREA
     Indication: KMT2A gene mutation
  24. VINCRISTINE [Suspect]
     Active Substance: VINCRISTINE
     Indication: Germ cell neoplasm
     Dosage: 2 MILLIGRAM, CYCLICAL (2MG IV WEEKLY 1 CYCLE (28-DAY CYCLE)  )
  25. VINCRISTINE [Suspect]
     Active Substance: VINCRISTINE
     Indication: Teratoma
  26. VINCRISTINE [Suspect]
     Active Substance: VINCRISTINE
     Indication: B-cell type acute leukaemia
  27. VINCRISTINE [Suspect]
     Active Substance: VINCRISTINE
     Indication: KMT2A gene mutation

REACTIONS (5)
  - Thrombocytopenia [Unknown]
  - Neutropenia [Unknown]
  - Constipation [Unknown]
  - Vomiting [Unknown]
  - Nausea [Unknown]
